FAERS Safety Report 24674266 (Version 1)
Quarter: 2024Q4

REPORT INFORMATION
  Report Type: Spontaneous
  Country: IN (occurrence: None)
  Receive Date: 20241128
  Receipt Date: 20241128
  Transmission Date: 20250114
  Serious: Yes (Other)
  Sender: ADIENNE PHARMA & BIOTECH
  Company Number: IN-ADIENNEP-2024AD000858

PATIENT
  Sex: Male

DRUGS (4)
  1. THIOTEPA [Suspect]
     Active Substance: THIOTEPA
     Indication: Allogenic stem cell transplantation
     Dosage: 10 MG/KG ON DAY-3 IN 2 DIVIDED DOSES
  2. LAPINE T-LYMPHOCYTE IMMUNE GLOBULIN [Suspect]
     Active Substance: LAPINE T-LYMPHOCYTE IMMUNE GLOBULIN
     Indication: Allogenic stem cell transplantation
     Dosage: 2.5 MG/KG ON DAY -9 TO DAY-7
  3. FLUDARABINE [Suspect]
     Active Substance: FLUDARABINE PHOSPHATE
     Indication: Allogenic stem cell transplantation
     Dosage: 30 MG/M2 ON DAY-6 TO DAY-2
  4. TREOSULFAN [Suspect]
     Active Substance: TREOSULFAN
     Indication: Allogenic stem cell transplantation
     Dosage: 12 GM/M2 ON DAY-6 TO DAY-4 (12G/M2)

REACTIONS (2)
  - Cytomegalovirus viraemia [Recovered/Resolved]
  - Graft versus host disease in liver [Recovered/Resolved]
